FAERS Safety Report 25317315 (Version 2)
Quarter: 2025Q2

REPORT INFORMATION
  Report Type: Report from Study
  Country: BR (occurrence: BR)
  Receive Date: 20250515
  Receipt Date: 20250521
  Transmission Date: 20250717
  Serious: No
  Sender: SANDOZ
  Company Number: BR-SANDOZ-SDZ2025BR031732

PATIENT
  Sex: Female

DRUGS (1)
  1. OMNITROPE [Suspect]
     Active Substance: SOMATROPIN
     Indication: Product used for unknown indication
     Dosage: 1.4 DAILY
     Route: 058

REACTIONS (1)
  - Circumstance or information capable of leading to device use error [Unknown]
